FAERS Safety Report 4338256-6 (Version None)
Quarter: 2004Q2

REPORT INFORMATION
  Report Type: 
  Country: None (occurrence: None)
  Receive Date: 20040413
  Receipt Date: 20040413
  Transmission Date: 20050107
  Serious: Yes (Other)
  Sender: FDA-Public Use
  Company Number: None

PATIENT
  Age: 40 Year
  Sex: Female
  Weight: 104.3273 kg

DRUGS (5)
  1. DIFLUCAN [Suspect]
     Indication: ORAL CANDIDIASIS
     Dosage: 150 MG 1 X DOSE ORAL
     Route: 048
     Dates: start: 20040411, end: 20040411
  2. ADVAIR DISKUS 100/50 [Concomitant]
  3. NEXIUM [Concomitant]
  4. NYSTATIN [Concomitant]
  5. DIFLUCAN [Concomitant]

REACTIONS (2)
  - INSOMNIA [None]
  - PAIN [None]
